FAERS Safety Report 11836305 (Version 2)
Quarter: 2016Q1

REPORT INFORMATION
  Report Type: Report from Study
  Country: DE (occurrence: DE)
  Receive Date: 20151215
  Receipt Date: 20160129
  Transmission Date: 20160525
  Serious: Yes (Hospitalization)
  Sender: FDA-Public Use
  Company Number: DE-TAKEDA-2015MPI008278

PATIENT
  Age: 56 Year
  Sex: Female
  Weight: 50 kg

DRUGS (14)
  1. FLORINEF ACETATE [Concomitant]
     Active Substance: FLUDROCORTISONE ACETATE
     Dosage: UNK, QD
  2. GUTRON [Concomitant]
     Active Substance: MIDODRINE
     Dosage: UNK, BID
  3. VITAMIN B [Concomitant]
     Active Substance: VITAMIN B
  4. IXAZOMIB [Suspect]
     Active Substance: IXAZOMIB
     Indication: AMYLOIDOSIS
     Dosage: 4 MG, UNK
     Route: 048
     Dates: start: 20150528, end: 20151029
  5. TORSEMIDE. [Concomitant]
     Active Substance: TORSEMIDE
     Dosage: UNK
     Dates: start: 20150916
  6. SYMBICORT [Concomitant]
     Active Substance: BUDESONIDE\FORMOTEROL FUMARATE DIHYDRATE
  7. ALDACTONE [Concomitant]
     Active Substance: SPIRONOLACTONE
     Dosage: 25 MG, QD
     Dates: start: 20150624
  8. PANTOZOL [Concomitant]
     Active Substance: PANTOPRAZOLE SODIUM
     Dosage: UNK, BID
     Dates: start: 20150708
  9. PANTOZOL [Concomitant]
     Active Substance: PANTOPRAZOLE SODIUM
     Dosage: 20 MG, BID
     Dates: start: 20150529
  10. TORSEMIDE. [Concomitant]
     Active Substance: TORSEMIDE
     Dosage: 5 UNK, UNK
     Dates: start: 20150722
  11. DEXAMETHASONE. [Suspect]
     Active Substance: DEXAMETHASONE
     Indication: AMYLOIDOSIS
     Dosage: 20 MG, UNK
     Route: 048
     Dates: start: 20150528, end: 20151105
  12. ACICLOVIR [Concomitant]
     Active Substance: ACYCLOVIR
     Dosage: UNK UNK, BID
     Dates: start: 20150529
  13. TORSEMIDE. [Concomitant]
     Active Substance: TORSEMIDE
     Dosage: 5 MG, UNK
     Dates: start: 20150625, end: 20150715
  14. MCP [Concomitant]
     Active Substance: METOCLOPRAMIDE HYDROCHLORIDE
     Dosage: UNK
     Dates: start: 20150709

REACTIONS (1)
  - Bronchitis [Recovered/Resolved]

NARRATIVE: CASE EVENT DATE: 201511
